FAERS Safety Report 4813522-6 (Version None)
Quarter: 2005Q4

REPORT INFORMATION
  Report Type: 
  Country: None (occurrence: None)
  Receive Date: 20051026
  Receipt Date: 20051011
  Transmission Date: 20060501
  Serious: No
  Sender: FDA-Public Use
  Company Number: USA0509107606

PATIENT
  Age: 14 Year
  Sex: Female
  Weight: 59.4212 kg

DRUGS (2)
  1. STRATTERA [Suspect]
     Indication: ATTENTION DEFICIT/HYPERACTIVITY DISORDER
     Dosage: 80 MG DAY
     Dates: start: 20050819, end: 20050908
  2. MULTI-VITAMIN [Concomitant]

REACTIONS (13)
  - ANOREXIA [None]
  - CHEST DISCOMFORT [None]
  - CONFUSIONAL STATE [None]
  - JAUNDICE [None]
  - LOCAL SWELLING [None]
  - MOUTH ULCERATION [None]
  - NAUSEA [None]
  - OCULAR ICTERUS [None]
  - OEDEMA MOUTH [None]
  - SOMNOLENCE [None]
  - SWELLING FACE [None]
  - VOMITING [None]
  - WHITE BLOOD CELL COUNT INCREASED [None]
